FAERS Safety Report 12901430 (Version 1)
Quarter: 2016Q4

REPORT INFORMATION
  Report Type: Report from Study
  Country: IT (occurrence: IT)
  Receive Date: 20161101
  Receipt Date: 20161101
  Transmission Date: 20170207
  Serious: Yes (Hospitalization, Other)
  Sender: FDA-Public Use
  Company Number: IT-ROCHE-1847536

PATIENT

DRUGS (5)
  1. PACLITAXEL. [Suspect]
     Active Substance: PACLITAXEL
     Indication: BREAST CANCER METASTATIC
     Route: 065
  2. ORPHENADRINE [Concomitant]
     Active Substance: ORPHENADRINE
     Dosage: HALF AN HOUR BEFORE PACLITAXEL INFUSION
     Route: 030
  3. CAPECITABINE. [Suspect]
     Active Substance: CAPECITABINE
     Indication: BREAST CANCER METASTATIC
     Dosage: DAY 1 THROUGH DAY 14?2 WEEKS^ TREATMENT, 1 WEEK REST
     Route: 048
  4. DEXAMETHASONE. [Concomitant]
     Active Substance: DEXAMETHASONE
     Dosage: HALF AN HOUR BEFORE THE PACLITAXEL INFUSION
     Route: 042
  5. RANITIDINE. [Concomitant]
     Active Substance: RANITIDINE
     Dosage: HALF AN HOUR BEFORE PACLITAXEL INFUSION
     Route: 042

REACTIONS (12)
  - Nausea [Unknown]
  - Fatigue [Unknown]
  - Hyperbilirubinaemia [Unknown]
  - Mucosal inflammation [Unknown]
  - Anaemia [Unknown]
  - Neurotoxicity [Unknown]
  - Neutropenia [Unknown]
  - Leukopenia [Unknown]
  - Vomiting [Unknown]
  - Blood bilirubin abnormal [Unknown]
  - Rash [Unknown]
  - Diarrhoea [Unknown]
